FAERS Safety Report 20594374 (Version 1)
Quarter: 2022Q1

REPORT INFORMATION
  Report Type: Spontaneous
  Country: TR (occurrence: TR)
  Receive Date: 20220315
  Receipt Date: 20220315
  Transmission Date: 20220423
  Serious: Yes (Hospitalization)
  Sender: FDA-Public Use
  Company Number: TR-SUN PHARMACEUTICAL INDUSTRIES LTD-2022RR-328632

PATIENT
  Age: 49 Year
  Sex: Male

DRUGS (1)
  1. SUNITINIB [Suspect]
     Active Substance: SUNITINIB
     Indication: Metastatic renal cell carcinoma
     Dosage: 50 MILLIGRAM, DAILY, FOR 2 WEEKS, THEN 1-WEEK INTERVAL
     Route: 065

REACTIONS (2)
  - Colitis [Unknown]
  - Diarrhoea [Recovered/Resolved]
